FAERS Safety Report 21218086 (Version 2)
Quarter: 2022Q3

REPORT INFORMATION
  Report Type: Spontaneous
  Country: US (occurrence: US)
  Receive Date: 20220816
  Receipt Date: 20220906
  Transmission Date: 20221027
  Serious: Yes (Other)
  Sender: FDA-Public Use
  Company Number: US-BRAINTREE LABORATORIES, INC.-2022BTE00669

PATIENT
  Sex: Female
  Weight: 49.887 kg

DRUGS (3)
  1. SUTAB [Suspect]
     Active Substance: MAGNESIUM SULFATE\POTASSIUM CHLORIDE\SODIUM SULFATE
     Indication: Colonoscopy
     Dosage: 2 X 12 TABLETS, 1X
     Dates: start: 20220712, end: 20220712
  2. GAVILYTE - C [Suspect]
     Active Substance: POLYETHYLENE GLYCOL 3350\POTASSIUM CHLORIDE\SODIUM BICARBONATE\SODIUM CHLORIDE\SODIUM SULFATE
     Indication: Colonoscopy
     Dosage: UNK
     Dates: start: 202207, end: 202207
  3. UNSPECIFIED INGREDIENT [Concomitant]
     Active Substance: UNSPECIFIED INGREDIENT

REACTIONS (11)
  - Rectal cancer [Not Recovered/Not Resolved]
  - Flatulence [Recovered/Resolved]
  - Pain [Recovered/Resolved]
  - Therapeutic product effect delayed [Recovered/Resolved]
  - Stress [Unknown]
  - Tissue irritation [Unknown]
  - Bowel movement irregularity [Recovered/Resolved]
  - Malaise [Unknown]
  - Fear [Not Recovered/Not Resolved]
  - Abdominal pain upper [Recovered/Resolved]
  - Abdominal distension [Recovered/Resolved]

NARRATIVE: CASE EVENT DATE: 20220101
